FAERS Safety Report 12085214 (Version 1)
Quarter: 2016Q1

REPORT INFORMATION
  Report Type: Spontaneous
  Country: CA (occurrence: CA)
  Receive Date: 20160217
  Receipt Date: 20160217
  Transmission Date: 20160526
  Serious: Yes (Other)
  Sender: FDA-Public Use
  Company Number: CA-PFIZER INC-2016084769

PATIENT
  Age: 5 Year
  Sex: Male

DRUGS (1)
  1. DILANTIN [Suspect]
     Active Substance: PHENYTOIN
     Indication: SEIZURE
     Dosage: 50 MG, 2X/DAY
     Route: 048

REACTIONS (4)
  - Seizure [Unknown]
  - Fatigue [Unknown]
  - Headache [Unknown]
  - Burning sensation [Unknown]
